FAERS Safety Report 9729917 (Version 6)
Quarter: 2016Q3

REPORT INFORMATION
  Report Type: Spontaneous
  Country: US (occurrence: US)
  Receive Date: 20131204
  Receipt Date: 20160711
  Transmission Date: 20161109
  Serious: Yes (Disabling, Other)
  Sender: FDA-Public Use
  Company Number: US-009507513-1312USA001777

PATIENT
  Sex: Female
  Weight: 96.61 kg

DRUGS (2)
  1. FOSAMAX [Suspect]
     Active Substance: ALENDRONATE SODIUM
     Indication: OSTEOPOROSIS PROPHYLAXIS
     Dosage: 70 MG, QW
     Route: 048
     Dates: start: 200404, end: 201005
  2. FOSAMAX [Suspect]
     Active Substance: ALENDRONATE SODIUM
     Indication: MULTIPLE FRACTURES

REACTIONS (34)
  - Sleep apnoea syndrome [Unknown]
  - Impaired healing [Unknown]
  - Pain in extremity [Unknown]
  - Headache [Unknown]
  - Rib fracture [Unknown]
  - Migraine [Unknown]
  - Connective tissue disorder [Unknown]
  - Blood cholesterol increased [Unknown]
  - Uveitis [Unknown]
  - Hip fracture [Not Recovered/Not Resolved]
  - Anxiety [Not Recovered/Not Resolved]
  - Low turnover osteopathy [Not Recovered/Not Resolved]
  - Femur fracture [Recovering/Resolving]
  - Liver function test increased [Unknown]
  - Osteoarthritis [Unknown]
  - Occipital neuralgia [Unknown]
  - Depression [Not Recovered/Not Resolved]
  - Hypoparathyroidism [Unknown]
  - Type 2 diabetes mellitus [Unknown]
  - Autoimmune disorder [Unknown]
  - Hand fracture [Unknown]
  - Foot fracture [Unknown]
  - Calcium deficiency [Unknown]
  - Osteoporosis [Not Recovered/Not Resolved]
  - Liver function test increased [Unknown]
  - Dermatitis [Unknown]
  - Gastrooesophageal reflux disease [Unknown]
  - Vitamin D deficiency [Unknown]
  - Hypertension [Unknown]
  - Foot operation [Unknown]
  - Knee arthroplasty [Unknown]
  - Cervicogenic headache [Unknown]
  - Exostosis [Unknown]
  - Hypothyroidism [Unknown]

NARRATIVE: CASE EVENT DATE: 200410
